FAERS Safety Report 25345930 (Version 1)
Quarter: 2025Q2

REPORT INFORMATION
  Report Type: Spontaneous
  Country: FR (occurrence: FR)
  Receive Date: 20250522
  Receipt Date: 20250522
  Transmission Date: 20250717
  Serious: Yes (Other)
  Sender: AUROBINDO
  Company Number: FR-AFSSAPS-AVMA2025000275

PATIENT
  Age: 25 Year
  Sex: Female

DRUGS (6)
  1. DIAZEPAM [Suspect]
     Active Substance: DIAZEPAM
     Indication: Product used for unknown indication
     Route: 065
  2. COCAINE [Suspect]
     Active Substance: COCAINE
     Indication: Product used for unknown indication
     Route: 065
  3. ALCOHOL [Suspect]
     Active Substance: ALCOHOL
     Indication: Product used for unknown indication
     Route: 065
  4. HEROIN [Suspect]
     Active Substance: DIAMORPHINE
     Indication: Product used for unknown indication
     Route: 065
  5. METHADONE HYDROCHLORIDE [Suspect]
     Active Substance: METHADONE HYDROCHLORIDE
     Indication: Product used for unknown indication
     Route: 065
  6. COCAETHYLENE [Suspect]
     Active Substance: COCAETHYLENE

REACTIONS (8)
  - Loss of consciousness [Recovered/Resolved with Sequelae]
  - Mydriasis [Recovered/Resolved with Sequelae]
  - Cyanosis [Recovered/Resolved with Sequelae]
  - Psychomotor hyperactivity [Recovered/Resolved with Sequelae]
  - Seizure [Recovered/Resolved with Sequelae]
  - Somnolence [Recovered/Resolved with Sequelae]
  - Substance use disorder [Unknown]
  - Drug use disorder [Unknown]

NARRATIVE: CASE EVENT DATE: 20241229
